FAERS Safety Report 21368484 (Version 2)
Quarter: 2022Q4

REPORT INFORMATION
  Report Type: Other
  Country: ES (occurrence: ES)
  Receive Date: 20220923
  Receipt Date: 20221213
  Transmission Date: 20230113
  Serious: Yes (Other)
  Sender: FDA-Public Use
  Company Number: ES-ROCHE-3183190

PATIENT
  Sex: Male

DRUGS (2)
  1. RITUXIMAB [Suspect]
     Active Substance: RITUXIMAB
     Indication: Acquired Von Willebrand^s disease
     Dosage: CYCLIC (6 CYCLES)
     Route: 065
  2. BENDAMUSTINE HYDROCHLORIDE [Suspect]
     Active Substance: BENDAMUSTINE HYDROCHLORIDE
     Indication: Acquired Von Willebrand^s disease
     Dosage: CYCLIC (1ST LINE OF TREATMENT 6 CYCLES)
     Route: 065

REACTIONS (3)
  - Eye haemorrhage [Unknown]
  - Haematoma muscle [Unknown]
  - Eye contusion [Unknown]
